FAERS Safety Report 7723738-7 (Version None)
Quarter: 2011Q3

REPORT INFORMATION
  Report Type: 
  Country: None (occurrence: None)
  Receive Date: 20110901
  Receipt Date: 20110825
  Transmission Date: 20111222
  Serious: Yes (Hospitalization)
  Sender: FDA-Public Use
  Company Number: US-JNJFOC-20110811347

PATIENT
  Sex: Female
  Weight: 44.4 kg

DRUGS (7)
  1. REMICADE [Suspect]
     Indication: INFLAMMATORY BOWEL DISEASE
     Route: 042
     Dates: start: 20041004, end: 20050603
  2. HUMIRA [Concomitant]
     Dates: start: 20100322
  3. FISH OIL [Concomitant]
  4. CIMZIA [Concomitant]
  5. MULTI-VITAMINS [Concomitant]
  6. MERCAPTOPURINE [Concomitant]
  7. PREDNISONE [Concomitant]

REACTIONS (3)
  - DISEASE PROGRESSION [None]
  - INFLAMMATORY BOWEL DISEASE [None]
  - ABDOMINAL PAIN [None]
